FAERS Safety Report 22058803 (Version 4)
Quarter: 2023Q2

REPORT INFORMATION
  Report Type: Spontaneous
  Country: US (occurrence: US)
  Receive Date: 20230303
  Receipt Date: 20230518
  Transmission Date: 20230721
  Serious: No
  Sender: FDA-Public Use
  Company Number: US-Ipsen Biopharmaceuticals, Inc.-2023-04705

PATIENT
  Sex: Female

DRUGS (1)
  1. DYSPORT [Suspect]
     Active Substance: ABOBOTULINUMTOXINA
     Indication: Quadriplegia
     Route: 065
     Dates: start: 20230207, end: 20230207

REACTIONS (11)
  - Headache [Unknown]
  - Pain [Unknown]
  - Asthenia [Unknown]
  - Eyelid ptosis [Unknown]
  - Slow speech [Unknown]
  - Somnolence [Unknown]
  - Gait disturbance [Unknown]
  - Rash [Unknown]
  - Anal incontinence [Unknown]
  - Urinary incontinence [Unknown]
  - Protein urine [Unknown]
